FAERS Safety Report 6525921-5 (Version None)
Quarter: 2010Q1

REPORT INFORMATION
  Report Type: 
  Country: None (occurrence: None)
  Receive Date: 20100104
  Receipt Date: 20091221
  Transmission Date: 20100710
  Serious: Yes (Hospitalization)
  Sender: FDA-Public Use
  Company Number: DE-PFIZER INC-2009295347

PATIENT
  Age: 66 Year
  Sex: Male

DRUGS (24)
  1. ZOLOFT [Interacting]
     Indication: DEPRESSION
     Dosage: 50 MG, 1X/DAY
     Route: 048
     Dates: start: 20090326, end: 20090407
  2. ZOLOFT [Interacting]
     Dosage: 100 MG, 1X/DAY
     Route: 048
     Dates: start: 20090408, end: 20090423
  3. ZOLOFT [Interacting]
     Dosage: 150 MG, 1X/DAY
     Route: 048
     Dates: start: 20090424, end: 20090426
  4. ZOLOFT [Interacting]
     Dosage: 200 MG, 1X/DAY
     Route: 048
     Dates: start: 20090427, end: 20090511
  5. ZOLOFT [Interacting]
     Dosage: 250 MG, 1X/DAY
     Route: 048
     Dates: start: 20090612, end: 20090612
  6. ZOLOFT [Interacting]
     Dosage: 150 MG, 1X/DAY
     Route: 048
     Dates: start: 20090621
  7. AMLODIPINE BESYLATE [Interacting]
     Dosage: 10 MG, PER DAY
     Route: 048
  8. METOPROLOL TARTRATE [Interacting]
     Dosage: 47.5MG PER DAY
     Route: 048
  9. ERGENYL CHRONO [Interacting]
     Dosage: 1500MG PER DAY
     Route: 048
     Dates: start: 20020101, end: 20060101
  10. ERGENYL CHRONO [Interacting]
     Dosage: 900MG PER DAY
     Route: 048
     Dates: start: 20060101, end: 20090617
  11. ERGENYL CHRONO [Interacting]
     Dosage: 600MG PER DAY
     Route: 048
     Dates: start: 20090618, end: 20090618
  12. ERGENYL CHRONO [Interacting]
     Dosage: 450MG PER DAY
     Route: 048
     Dates: start: 20090619, end: 20090619
  13. ERGENYL CHRONO [Interacting]
     Dosage: 300MG PER DAY
     Route: 048
     Dates: start: 20090620, end: 20090620
  14. ERGENYL CHRONO [Interacting]
     Dosage: 150MG PER DAY
     Route: 048
     Dates: start: 20090621
  15. REMERGIL [Suspect]
     Dosage: 7.5MG PER DAY
     Route: 048
     Dates: end: 20090415
  16. REMERGIL [Suspect]
     Dosage: 15MG PER DAY
     Route: 048
     Dates: start: 20090416, end: 20090430
  17. REMERGIL [Suspect]
     Dosage: 30MG PER DAY
     Route: 048
     Dates: start: 20090501, end: 20090615
  18. REMERGIL [Suspect]
     Dosage: 15MG PER DAY
     Route: 048
     Dates: start: 20090616, end: 20090616
  19. REMERGIL [Suspect]
     Dosage: 7.5MG PER DAY
     Route: 048
     Dates: start: 20090617, end: 20090617
  20. MARCUMAR [Concomitant]
     Dosage: UNK
     Route: 048
     Dates: start: 20020101
  21. L-THYROXIN [Concomitant]
     Dosage: UNK
     Route: 048
  22. LASIX [Concomitant]
     Dosage: UNK
     Route: 048
  23. ASPIRIN [Concomitant]
     Dosage: UNK
     Route: 048
  24. BENALAPRIL [Concomitant]
     Dosage: UNK
     Route: 048

REACTIONS (3)
  - DRUG INTERACTION [None]
  - GAMMA-GLUTAMYLTRANSFERASE INCREASED [None]
  - TRANSAMINASES INCREASED [None]
